FAERS Safety Report 8496035-2 (Version None)
Quarter: 2012Q3

REPORT INFORMATION
  Report Type: 
  Country: None (occurrence: None)
  Receive Date: 20120709
  Receipt Date: 20120703
  Transmission Date: 20120928
  Serious: Yes (Death, Hospitalization)
  Sender: FDA-Public Use
  Company Number: HU-ROCHE-591511

PATIENT
  Sex: Male
  Weight: 57 kg

DRUGS (3)
  1. ENSURE [Concomitant]
     Dosage: (AMINO ACID NOS, MINERAL NOS, VITAMIN NOS)
     Dates: start: 20080918
  2. ROFERON-A [Suspect]
     Indication: RENAL CELL CARCINOMA
     Dosage: REPORTED AS ROFERON.DOSE: 3 MU. FREQUENCY WEEKLY 3
     Route: 058
     Dates: start: 20080925, end: 20081008
  3. AVASTIN [Suspect]
     Indication: RENAL CELL CARCINOMA
     Dosage: FREQUENCY REPORTED AS BI WEEKLY
     Route: 042
     Dates: start: 20080925, end: 20081008

REACTIONS (4)
  - CARDIOPULMONARY FAILURE [None]
  - ASTHENIA [None]
  - HAEMOGLOBIN DECREASED [None]
  - DECREASED APPETITE [None]
